FAERS Safety Report 9860583 (Version 2)
Quarter: 2014Q1

REPORT INFORMATION
  Report Type: Spontaneous
  Country: GB (occurrence: GB)
  Receive Date: 20140202
  Receipt Date: 20140202
  Transmission Date: 20141002
  Serious: No
  Sender: FDA-Public Use
  Company Number: GB-ALLERGAN-1102259US

PATIENT
  Age: 43 Year
  Sex: Male

DRUGS (1)
  1. BOTOX [Suspect]
     Indication: HYPERHIDROSIS
     Dosage: UNK
     Dates: start: 2004

REACTIONS (2)
  - Urticaria cholinergic [Recovered/Resolved]
  - Therapeutic response decreased [Unknown]
